FAERS Safety Report 14119257 (Version 2)
Quarter: 2017Q4

REPORT INFORMATION
  Report Type: Spontaneous
  Country: US (occurrence: US)
  Receive Date: 20171024
  Receipt Date: 20171102
  Transmission Date: 20180321
  Serious: Yes (Hospitalization)
  Sender: FDA-Public Use
  Company Number: US-PFIZER INC-2017453315

PATIENT
  Age: 76 Year
  Sex: Female
  Weight: 58.96 kg

DRUGS (2)
  1. IBRANCE [Suspect]
     Active Substance: PALBOCICLIB
     Dosage: 125 MG, CYCLIC, (1 TO 21 Q28 DAYS)
     Route: 048
     Dates: start: 20170924
  2. IBRANCE [Suspect]
     Active Substance: PALBOCICLIB
     Indication: BREAST CANCER METASTATIC
     Dosage: 125 MG, CYCLIC, (1 TO 21 Q28 DAYS)
     Route: 048
     Dates: start: 20170924

REACTIONS (2)
  - Pneumonia [Unknown]
  - Cough [Unknown]

NARRATIVE: CASE EVENT DATE: 20171015
